FAERS Safety Report 8306215-4 (Version None)
Quarter: 2012Q2

REPORT INFORMATION
  Report Type: 
  Country: None (occurrence: None)
  Receive Date: 20120423
  Receipt Date: 20120416
  Transmission Date: 20120825
  Serious: Yes (Hospitalization, Disabling)
  Sender: FDA-Public Use
  Company Number: FR-ROCHE-1044167

PATIENT
  Sex: Female
  Weight: 79 kg

DRUGS (7)
  1. CORTICOSTEROID NOS [Concomitant]
  2. ACTEMRA [Suspect]
     Dosage: 640  MONTHLY DOSE
     Dates: start: 20111110
  3. ACTEMRA [Suspect]
     Dosage: 640  MONTHLY DOSE
     Dates: start: 20120111
  4. ACTEMRA [Suspect]
     Dosage: 640  MONTHLY DOSE
     Dates: start: 20120208
  5. ACTEMRA [Suspect]
     Indication: RHEUMATOID ARTHRITIS
     Dosage: 640  MONTHLY DOSE
     Dates: start: 20111011
  6. ACTEMRA [Suspect]
     Dosage: 640  MONTHLY DOSE
     Dates: start: 20111214
  7. METHOTREXATE [Concomitant]

REACTIONS (1)
  - ISCHAEMIC STROKE [None]
